FAERS Safety Report 21194527 (Version 1)
Quarter: 2022Q3

REPORT INFORMATION
  Report Type: Spontaneous
  Country: AU (occurrence: AU)
  Receive Date: 20220810
  Receipt Date: 20220810
  Transmission Date: 20221026
  Serious: Yes (Other)
  Sender: FDA-Public Use
  Company Number: AU-MYLANLABS-2022M1084680

PATIENT
  Age: 9 Year
  Sex: Male

DRUGS (3)
  1. TERBINAFINE [Suspect]
     Active Substance: TERBINAFINE
     Indication: Kerion
     Dosage: UNK
     Route: 048
  2. MICONAZOLE [Suspect]
     Active Substance: MICONAZOLE
     Indication: Kerion
     Dosage: UNK
     Route: 061
  3. CEPHALEXIN [Concomitant]
     Active Substance: CEPHALEXIN
     Indication: Drug therapy
     Dosage: UNK
     Route: 048

REACTIONS (1)
  - Drug ineffective [Unknown]
